FAERS Safety Report 9904521 (Version 3)
Quarter: 2014Q1

REPORT INFORMATION
  Report Type: Spontaneous
  Country: JP (occurrence: JP)
  Receive Date: 20140218
  Receipt Date: 20140331
  Transmission Date: 20141002
  Serious: Yes (Other)
  Sender: FDA-Public Use
  Company Number: JP-JNJFOC-20140200465

PATIENT
  Age: 7 Decade
  Sex: Female

DRUGS (1)
  1. ITRIZOLE [Suspect]
     Indication: ONYCHOMYCOSIS
     Dosage: PULSE THERAPY
     Route: 048

REACTIONS (2)
  - Depressed level of consciousness [Unknown]
  - Somnolence [Unknown]
